FAERS Safety Report 6965366-7 (Version None)
Quarter: 2010Q3

REPORT INFORMATION
  Report Type: 
  Country: None (occurrence: None)
  Receive Date: 20100901
  Receipt Date: 20100817
  Transmission Date: 20110219
  Serious: Yes (Life-Threatening, Hospitalization, Other)
  Sender: FDA-Public Use
  Company Number: A-NJ2010-38571

PATIENT
  Age: 54 Year
  Sex: Female
  Weight: 90.5 kg

DRUGS (4)
  1. TRACLEER [Suspect]
     Indication: PULMONARY ARTERIAL HYPERTENSION
     Dosage: 125 MG, BID, ORAL; ORAL
     Route: 048
     Dates: end: 20100527
  2. TRACLEER [Suspect]
     Indication: PULMONARY ARTERIAL HYPERTENSION
     Dosage: 125 MG, BID, ORAL; ORAL
     Route: 048
     Dates: start: 20070418
  3. VENTAVIS [Concomitant]
  4. LISINOPRIL [Concomitant]

REACTIONS (1)
  - CHOLESTASIS [None]
